FAERS Safety Report 9230051 (Version 4)
Quarter: 2014Q2

REPORT INFORMATION
  Report Type: Spontaneous
  Country: US (occurrence: US)
  Receive Date: 20130415
  Receipt Date: 20140606
  Transmission Date: 20141212
  Serious: Yes (Hospitalization, Other)
  Sender: FDA-Public Use
  Company Number: US-JNJFOC-20130403209

PATIENT
  Age: 83 Year
  Sex: Male
  Weight: 65.77 kg

DRUGS (5)
  1. XARELTO [Suspect]
     Indication: CEREBROVASCULAR ACCIDENT PROPHYLAXIS
     Route: 048
     Dates: start: 201206, end: 201303
  2. XARELTO [Suspect]
     Indication: CEREBROVASCULAR ACCIDENT PROPHYLAXIS
     Route: 048
  3. XARELTO [Suspect]
     Indication: ATRIAL FIBRILLATION
     Route: 048
  4. XARELTO [Suspect]
     Indication: ATRIAL FIBRILLATION
     Route: 048
     Dates: start: 201206, end: 201303
  5. ASPIRIN [Suspect]
     Indication: PRODUCT USED FOR UNKNOWN INDICATION
     Route: 065

REACTIONS (9)
  - Faeces discoloured [Recovered/Resolved]
  - Syncope [Unknown]
  - Shock haemorrhagic [Recovering/Resolving]
  - Bundle branch block right [Unknown]
  - Haemorrhagic anaemia [Recovering/Resolving]
  - Pleural effusion [Unknown]
  - Renal atrophy [Unknown]
  - Diverticulitis [Unknown]
  - Inguinal hernia [Unknown]
